FAERS Safety Report 23601198 (Version 1)
Quarter: 2024Q1

REPORT INFORMATION
  Report Type: Spontaneous
  Country: US (occurrence: US)
  Receive Date: 20240306
  Receipt Date: 20240306
  Transmission Date: 20240409
  Serious: Yes (Disabling)
  Sender: FDA-Public Use
  Company Number: US-SA-SAC20240306000605

PATIENT
  Sex: Male
  Weight: 85.7 kg

DRUGS (1)
  1. DUPIXENT [Suspect]
     Active Substance: DUPILUMAB
     Indication: Dermatitis atopic
     Dosage: 600 MG, 1X
     Route: 058

REACTIONS (3)
  - Loss of personal independence in daily activities [Unknown]
  - Rash [Unknown]
  - Dermatitis atopic [Unknown]
